FAERS Safety Report 15959004 (Version 1)
Quarter: 2019Q1

REPORT INFORMATION
  Report Type: Spontaneous
  Country: DE (occurrence: DE)
  Receive Date: 20190214
  Receipt Date: 20190214
  Transmission Date: 20190417
  Serious: Yes (Congenital Anomaly, Other)
  Sender: FDA-Public Use
  Company Number: DE-AUROBINDO-AUR-APL-2019-007420

PATIENT

DRUGS (3)
  1. FOLIC ACID. [Concomitant]
     Active Substance: FOLIC ACID
     Indication: PROPHYLAXIS OF NEURAL TUBE DEFECT
     Dosage: 4.4. - 5.3. GESTATIONAL WEEK
     Route: 064
     Dates: start: 20170907, end: 20170913
  2. ESCITALOPRAM [Suspect]
     Active Substance: ESCITALOPRAM OXALATE
     Indication: DEPRESSION
     Dosage: 10 [MG/D (5) ], 0. - 5.5. GESTATIONAL WEEK
     Route: 064
     Dates: start: 20170806, end: 20170915
  3. SKINOREN [Concomitant]
     Active Substance: AZELAIC ACID
     Indication: ACNE
     Dosage: TRIMESTER: PRECONCEPTIONAL
     Route: 064

REACTIONS (3)
  - Transposition of the great vessels [Not Recovered/Not Resolved]
  - Foetal exposure during pregnancy [Unknown]
  - Atrial septal defect [Not Recovered/Not Resolved]

NARRATIVE: CASE EVENT DATE: 20180416
